FAERS Safety Report 5166034-7 (Version None)
Quarter: 2007Q1

REPORT INFORMATION
  Report Type: 
  Country: None (occurrence: None)
  Receive Date: 20061128
  Receipt Date: 20061019
  Transmission Date: 20070707
  Serious: Yes (Death)
  Sender: FDA-Public Use
  Company Number: MEDI-0004971

PATIENT
  Age: 2 Month
  Sex: Male
  Weight: 3.86 kg

DRUGS (2)
  1. SYNAGIS [Suspect]
     Indication: ANTIVIRAL PROPHYLAXIS
     Dosage: 0.38 ML, INTRAMUSCULAR
     Route: 030
     Dates: start: 20031129, end: 20031230
  2. SYNAGIS [Suspect]
     Indication: ANTIVIRAL PROPHYLAXIS
     Dosage: 0.38 ML, INTRAMUSCULAR
     Route: 030
     Dates: start: 20031129

REACTIONS (4)
  - INTERSTITIAL LUNG DISEASE [None]
  - PETECHIAE [None]
  - SUDDEN INFANT DEATH SYNDROME [None]
  - UPPER RESPIRATORY TRACT INFECTION [None]
